FAERS Safety Report 6391151-3 (Version None)
Quarter: 2009Q4

REPORT INFORMATION
  Report Type: 
  Country: None (occurrence: None)
  Receive Date: 20091006
  Receipt Date: 20091006
  Transmission Date: 20100525
  Serious: Yes (Hospitalization)
  Sender: FDA-Public Use
  Company Number: None

PATIENT
  Sex: Female
  Weight: 74.8435 kg

DRUGS (1)
  1. LEVETIRACETAM [Suspect]
     Indication: CONVULSION
     Dosage: 1 TABLET BID PO  LESS THAN 3 MONTHS
     Route: 048
     Dates: start: 20090714, end: 20091005

REACTIONS (2)
  - ANXIETY [None]
  - INSOMNIA [None]
